FAERS Safety Report 23729172 (Version 2)
Quarter: 2024Q2

REPORT INFORMATION
  Report Type: Spontaneous
  Country: US (occurrence: None)
  Receive Date: 20240410
  Receipt Date: 20240522
  Transmission Date: 20240716
  Serious: Yes (Hospitalization, Other)
  Sender: FDA-Public Use
  Company Number: 2024A079432

PATIENT
  Age: 30638 Day
  Sex: Female

DRUGS (1)
  1. FASENRA [Suspect]
     Active Substance: BENRALIZUMAB
     Route: 058

REACTIONS (9)
  - Loss of consciousness [Unknown]
  - Fall [Unknown]
  - Spinal fracture [Unknown]
  - Femur fracture [Unknown]
  - Thrombosis [Unknown]
  - Hepatic function abnormal [Unknown]
  - Pelvic girdle pain [Unknown]
  - Spinal pain [Unknown]
  - Compression fracture [Unknown]

NARRATIVE: CASE EVENT DATE: 20240328
